FAERS Safety Report 4547864-9 (Version None)
Quarter: 2004Q4

REPORT INFORMATION
  Report Type: 
  Country: None (occurrence: None)
  Receive Date: 20041227
  Receipt Date: 20041118
  Transmission Date: 20050328
  Serious: No
  Sender: FDA-Public Use
  Company Number: 04P-163-0280957-00

PATIENT
  Age: 67 Year
  Sex: Female
  Weight: 56.246 kg

DRUGS (6)
  1. HUMIRA [Suspect]
     Indication: RHEUMATOID ARTHRITIS
     Dosage: 40 MG, 1 IN 2 WK SUBCUTANEOUS
     Route: 058
     Dates: start: 20040727
  2. VOLTEX [Concomitant]
  3. METHOTREXATE [Concomitant]
  4. ALENDRONAGE SODIUM [Concomitant]
  5. ESOMEPRAZOLE [Concomitant]
  6. AMLODIPINE BESYLATE [Concomitant]

REACTIONS (7)
  - ANAEMIA [None]
  - BODY TEMPERATURE INCREASED [None]
  - HEADACHE [None]
  - LABORATORY TEST ABNORMAL [None]
  - MELAENA [None]
  - SINUSITIS [None]
  - ULCER [None]
